FAERS Safety Report 7878344-0 (Version None)
Quarter: 2011Q4

REPORT INFORMATION
  Report Type: 
  Country: None (occurrence: None)
  Receive Date: 20111101
  Receipt Date: 20111020
  Transmission Date: 20120403
  Serious: Yes (Other)
  Sender: FDA-Public Use
  Company Number: HU-JNJFOC-20070705223

PATIENT
  Age: 54 Year
  Sex: Female
  Weight: 77 kg

DRUGS (9)
  1. METHOTREXATE [Suspect]
     Indication: PSORIATIC ARTHROPATHY
  2. METAMIZOLE SODIUM [Concomitant]
     Route: 048
  3. FOLIC ACID [Concomitant]
     Indication: PSORIATIC ARTHROPATHY
     Route: 048
     Dates: start: 20070605
  4. METHYLPREDNISOLONE [Concomitant]
     Indication: PSORIATIC ARTHROPATHY
     Route: 048
     Dates: start: 20020101
  5. ACETYL-SALLCYLLCUM ACID [Concomitant]
     Indication: ARTERIOSCLEROSIS CORONARY ARTERY
     Route: 048
     Dates: start: 20020101
  6. REMICADE [Suspect]
     Indication: PSORIATIC ARTHROPATHY
     Route: 042
     Dates: start: 20070605
  7. FUROSEMIDE [Concomitant]
     Indication: HYPERTONIA
     Route: 048
     Dates: start: 20020101
  8. CEFUROXIME [Concomitant]
     Route: 042
  9. REMICADE [Suspect]
     Route: 042
     Dates: start: 20070619

REACTIONS (1)
  - LATENT TUBERCULOSIS [None]
